FAERS Safety Report 8249535-4 (Version None)
Quarter: 2012Q1

REPORT INFORMATION
  Report Type: 
  Country: None (occurrence: None)
  Receive Date: 20120327
  Receipt Date: 20120314
  Transmission Date: 20120608
  Serious: Yes (Hospitalization)
  Sender: FDA-Public Use
  Company Number: LT-1191121

PATIENT
  Age: 3 Month
  Sex: Female
  Weight: 4.2 kg

DRUGS (3)
  1. PANCREATIN TRIPLE STRENGTH CAP [Concomitant]
  2. CYCLOGYL [Suspect]
     Indication: OPHTHALMOLOGICAL EXAMINATION
     Dosage: 1 DROP EACH EYE OPHTHALMIC
     Route: 047
     Dates: start: 20120306, end: 20120306
  3. AMOXICILLIN [Concomitant]

REACTIONS (3)
  - RASH [None]
  - TACHYCARDIA [None]
  - ANXIETY [None]
